FAERS Safety Report 5473283-7 (Version None)
Quarter: 2007Q4

REPORT INFORMATION
  Report Type: 
  Country: None (occurrence: None)
  Receive Date: 20071001
  Receipt Date: 20070921
  Transmission Date: 20080405
  Serious: Yes (Disabling, Other)
  Sender: FDA-Public Use
  Company Number: US-JNJFOC-20070806298

PATIENT
  Sex: Male
  Weight: 96.62 kg

DRUGS (1)
  1. REMICADE [Suspect]
     Indication: CROHN'S DISEASE
     Route: 042

REACTIONS (5)
  - ARTHRALGIA [None]
  - LUPUS-LIKE SYNDROME [None]
  - MYALGIA [None]
  - RAYNAUD'S PHENOMENON [None]
  - SWELLING [None]
